FAERS Safety Report 6446018-9 (Version None)
Quarter: 2009Q4

REPORT INFORMATION
  Report Type: 
  Country: None (occurrence: None)
  Receive Date: 20091119
  Receipt Date: 20090804
  Transmission Date: 20100525
  Serious: No
  Sender: FDA-Public Use
  Company Number: A0800445A

PATIENT
  Age: 19 Year
  Sex: Female

DRUGS (2)
  1. WELLBUTRIN SR [Suspect]
     Indication: ADJUSTMENT DISORDER
     Dosage: 100MG PER DAY
     Route: 048
     Dates: start: 20070814, end: 20080701
  2. WELLBUTRIN XL [Suspect]
     Indication: ADJUSTMENT DISORDER
     Dosage: 150MG PER DAY
     Route: 048
     Dates: start: 20070612, end: 20070814

REACTIONS (2)
  - HYPOGEUSIA [None]
  - HYPOSMIA [None]
